FAERS Safety Report 4554483-7 (Version None)
Quarter: 2005Q1

REPORT INFORMATION
  Report Type: 
  Country: None (occurrence: None)
  Receive Date: 20050114
  Receipt Date: 20040403
  Transmission Date: 20050727
  Serious: Yes (Hospitalization)
  Sender: FDA-Public Use
  Company Number: GXKR2004BR00513

PATIENT
  Sex: Female
  Weight: 52 kg

DRUGS (3)
  1. FLUOXETINE (NGX) (FLUOXETINE) TABLET [Suspect]
     Indication: DEPRESSION
     Dosage: 20 MG, QHS, ORAL
     Route: 048
     Dates: start: 20040306, end: 20040308
  2. FLUOXETINE (NGX) (FLUOXETINE) TABLET [Suspect]
     Indication: DEPRESSION
     Dosage: ORAL
     Route: 048
     Dates: start: 20040323, end: 20040331
  3. MINESSE (ETHINYLESTRADIOL, GESTODENE) [Concomitant]

REACTIONS (9)
  - ANOREXIA [None]
  - DIARRHOEA [None]
  - DIZZINESS [None]
  - DRY MOUTH [None]
  - GASTROINTESTINAL DISORDER [None]
  - HEADACHE [None]
  - INFECTION [None]
  - TREMOR [None]
  - VERTIGO [None]
